FAERS Safety Report 5076898-3 (Version None)
Quarter: 2006Q3

REPORT INFORMATION
  Report Type: 
  Country: None (occurrence: None)
  Receive Date: 20060807
  Receipt Date: 20060728
  Transmission Date: 20061208
  Serious: No
  Sender: FDA-Public Use
  Company Number: US200605004246

PATIENT
  Age: 65 Year
  Sex: Female

DRUGS (7)
  1. CYMBALTA [Suspect]
     Indication: DEPRESSION
     Dosage: SEE IMAGE
     Dates: start: 20060101, end: 20060101
  2. CYMBALTA [Suspect]
     Indication: DEPRESSION
     Dosage: SEE IMAGE
     Dates: start: 20060101, end: 20060724
  3. CYMBALTA [Suspect]
  4. REMERON [Concomitant]
  5. ATACAND [Concomitant]
  6. WELLBUTRIN [Concomitant]
  7. AMBIEN [Concomitant]

REACTIONS (16)
  - ASTIGMATISM [None]
  - DIARRHOEA [None]
  - EAR DISCOMFORT [None]
  - EAR DISORDER [None]
  - EYE DISORDER [None]
  - EYE HAEMORRHAGE [None]
  - FEAR [None]
  - FEELING ABNORMAL [None]
  - OCULAR HYPERAEMIA [None]
  - OCULAR ICTERUS [None]
  - PHARMACEUTICAL PRODUCT COMPLAINT [None]
  - SINUS DISORDER [None]
  - VASCULAR INJURY [None]
  - VASCULAR RUPTURE [None]
  - VISION BLURRED [None]
  - VISUAL ACUITY REDUCED [None]
